FAERS Safety Report 14597549 (Version 4)
Quarter: 2018Q4

REPORT INFORMATION
  Report Type: Report from Study
  Country: None (occurrence: US)
  Receive Date: 20180305
  Receipt Date: 20181224
  Transmission Date: 20190204
  Serious: Yes (Hospitalization, Other)
  Sender: FDA-Public Use
  Company Number: US-ABBVIE-18K-163-2272320-00

PATIENT
  Sex: Female

DRUGS (2)
  1. HUMIRA [Suspect]
     Active Substance: ADALIMUMAB
     Indication: PSORIASIS
  2. HUMIRA [Suspect]
     Active Substance: ADALIMUMAB
     Indication: ANKYLOSING SPONDYLITIS
     Route: 058
     Dates: start: 20170316

REACTIONS (15)
  - Malaise [Unknown]
  - Heart rate decreased [Unknown]
  - Mass [Unknown]
  - Cataract [Unknown]
  - Urinary tract infection [Unknown]
  - Fatigue [Unknown]
  - Cyst [Unknown]
  - Blood creatine increased [Unknown]
  - Constipation [Unknown]
  - Blood potassium increased [Unknown]
  - Dehydration [Unknown]
  - Arthritis [Unknown]
  - Retinal detachment [Recovering/Resolving]
  - Weight decreased [Unknown]
  - Pain [Unknown]
